FAERS Safety Report 8570761-9 (Version None)
Quarter: 2012Q3

REPORT INFORMATION
  Report Type: 
  Country: None (occurrence: None)
  Receive Date: 20120805
  Receipt Date: 20120723
  Transmission Date: 20120928
  Serious: No
  Sender: FDA-Public Use
  Company Number: US-009507513-1207USA011431

PATIENT

DRUGS (4)
  1. CRESTOR [Suspect]
     Route: 048
  2. PRILOSEC [Suspect]
     Route: 048
  3. ZETIA [Concomitant]
     Route: 048
  4. ZOCOR [Suspect]
     Route: 048

REACTIONS (2)
  - RENAL DISORDER [None]
  - OFF LABEL USE [None]
